FAERS Safety Report 20157703 (Version 2)
Quarter: 2022Q2

REPORT INFORMATION
  Report Type: Report from Study
  Country: JO (occurrence: JO)
  Receive Date: 20211207
  Receipt Date: 20220520
  Transmission Date: 20220721
  Serious: Yes (Hospitalization)
  Sender: FDA-Public Use
  Company Number: JO-NOVARTISPH-NVSC2021JO278517

PATIENT
  Age: 22 Year
  Sex: Female
  Weight: 69 kg

DRUGS (2)
  1. TRAMETINIB [Suspect]
     Active Substance: TRAMETINIB
     Indication: Metastatic glioma
     Dosage: 2 MG, QD
     Route: 048
     Dates: start: 20210223, end: 20211031
  2. TAFINLAR [Suspect]
     Active Substance: DABRAFENIB MESYLATE
     Indication: Metastatic glioma
     Dosage: UNK
     Route: 065

REACTIONS (2)
  - Infection [Recovering/Resolving]
  - Erythema [Unknown]

NARRATIVE: CASE EVENT DATE: 20211024
